FAERS Safety Report 14706108 (Version 2)
Quarter: 2018Q2

REPORT INFORMATION
  Report Type: Spontaneous
  Country: US (occurrence: US)
  Receive Date: 20180402
  Receipt Date: 20180420
  Transmission Date: 20180711
  Serious: No
  Sender: FDA-Public Use
  Company Number: US-PFIZER INC-2018131870

PATIENT
  Age: 70 Year
  Sex: Female
  Weight: 118 kg

DRUGS (10)
  1. XELJANZ XR [Suspect]
     Active Substance: TOFACITINIB CITRATE
     Indication: RHEUMATOID ARTHRITIS
     Dosage: 11 MG, 1X/DAY
     Route: 048
     Dates: end: 20180320
  2. AMLODIPINE [Concomitant]
     Active Substance: AMLODIPINE BESYLATE
     Indication: BLOOD PRESSURE ABNORMAL
     Dosage: 5 MG, 1X/DAY, (IN THE MORNING)
     Route: 048
     Dates: start: 201702
  3. POTASSIUM [Concomitant]
     Active Substance: POTASSIUM
     Indication: ELECTROLYTE SUBSTITUTION THERAPY
     Dosage: 40 MG, 1X/DAY
     Route: 048
     Dates: start: 201504
  4. TRIAM [Concomitant]
     Active Substance: TRIAMCINOLONE
     Indication: DEAFNESS
     Dosage: 37.5 MG, 1X/DAY
     Route: 048
  5. ROSUVASTATIN. [Concomitant]
     Active Substance: ROSUVASTATIN
     Dosage: 10 MG, 1X/DAY, AT NIGHT
     Route: 048
     Dates: start: 201802
  6. ASPIRIN. [Concomitant]
     Active Substance: ASPIRIN
     Dosage: 81 MG, 1X/DAY
     Route: 048
  7. BABY ASPIRIN [Concomitant]
     Active Substance: ASPIRIN
     Dosage: UNK
  8. METHOTREXATE. [Concomitant]
     Active Substance: METHOTREXATE
     Indication: RHEUMATOID ARTHRITIS
     Dosage: 2.5 MG, UNK (2 PILLS ON FRIDAY MORNING, 2 PILLS ON FRIDAY NIGHT, AND 2 PILLS SATURDAY MORNING)
     Route: 048
     Dates: start: 2000, end: 20180320
  9. METHOTREXATE. [Concomitant]
     Active Substance: METHOTREXATE
     Dosage: UNK
     Dates: start: 20180331
  10. FOLIC ACID. [Concomitant]
     Active Substance: FOLIC ACID
     Dosage: 1 MG, 1X/DAY
     Route: 048
     Dates: start: 2000

REACTIONS (3)
  - Sinusitis [Recovered/Resolved]
  - Head discomfort [Unknown]
  - Ear discomfort [Unknown]

NARRATIVE: CASE EVENT DATE: 20180320
